FAERS Safety Report 19660149 (Version 1)
Quarter: 2021Q3

REPORT INFORMATION
  Report Type: Spontaneous
  Country: GB (occurrence: GB)
  Receive Date: 20210805
  Receipt Date: 20210805
  Transmission Date: 20211014
  Serious: Yes (Other)
  Sender: FDA-Public Use
  Company Number: GB-MYLANLABS-2021M1045631

PATIENT
  Age: 30 Year
  Sex: Female
  Weight: 86 kg

DRUGS (1)
  1. CITALOPRAM [Suspect]
     Active Substance: CITALOPRAM HYDROBROMIDE
     Indication: ANXIETY
     Dosage: 40 MILLIGRAM
     Route: 048

REACTIONS (5)
  - Thinking abnormal [Unknown]
  - Off label use [Unknown]
  - Amnesia [Unknown]
  - Bradyphrenia [Unknown]
  - Feeling abnormal [Unknown]
